FAERS Safety Report 4993898-X (Version None)
Quarter: 2006Q2

REPORT INFORMATION
  Report Type: 
  Country: None (occurrence: None)
  Receive Date: 20060503
  Receipt Date: 20060420
  Transmission Date: 20061013
  Serious: Yes (Other)
  Sender: FDA-Public Use
  Company Number: GXKR2006JP02150

PATIENT
  Age: 90 Year
  Sex: Male

DRUGS (3)
  1. RIFAMPICIN [Suspect]
     Indication: PULMONARY TUBERCULOSIS
  2. ISONIAZID [Suspect]
     Indication: PULMONARY TUBERCULOSIS
  3. LEVOFLOXACIN [Suspect]
     Indication: PULMONARY TUBERCULOSIS

REACTIONS (2)
  - CONDITION AGGRAVATED [None]
  - DERMATITIS EXFOLIATIVE [None]
